FAERS Safety Report 24916171 (Version 1)
Quarter: 2025Q1

REPORT INFORMATION
  Report Type: Spontaneous
  Country: FR (occurrence: FR)
  Receive Date: 20250203
  Receipt Date: 20250203
  Transmission Date: 20250409
  Serious: Yes (Hospitalization, Other)
  Sender: BAYER HEALTHCARE PHARMACEUTICALS INC.
  Company Number: None

PATIENT
  Age: 38 Year
  Sex: Male

DRUGS (19)
  1. MOXIFLOXACIN HYDROCHLORIDE [Suspect]
     Active Substance: MOXIFLOXACIN HYDROCHLORIDE
     Indication: Mycoplasma infection
     Dosage: 1 TABLET PER DAY FOR 7 DAYS, EVERY 1 DAYS
     Route: 065
     Dates: start: 20230912
  2. AMOXICILLIN [Suspect]
     Active Substance: AMOXICILLIN
     Indication: Mycoplasma infection
     Route: 065
     Dates: start: 20230801
  3. DOXYCYCLINE [Suspect]
     Active Substance: DOXYCYCLINE
     Indication: Mycoplasma infection
     Route: 048
     Dates: start: 20230920, end: 20230925
  4. DOXYCYCLINE HYCLATE [Suspect]
     Active Substance: DOXYCYCLINE HYCLATE
     Indication: Mycoplasma infection
     Dosage: 2 DF, QD
     Route: 065
     Dates: start: 20230912
  5. DOXYCYCLINE [Suspect]
     Active Substance: DOXYCYCLINE
     Indication: Peritonitis
     Dosage: UNK UNK, QD
     Route: 048
     Dates: start: 20230912
  6. ECONAZOLE NITRATE [Suspect]
     Active Substance: ECONAZOLE NITRATE
     Indication: Penile pain
     Route: 065
     Dates: start: 20230921
  7. ECONAZOLE NITRATE [Suspect]
     Active Substance: ECONAZOLE NITRATE
     Indication: Penile swelling
  8. ECONAZOLE NITRATE [Suspect]
     Active Substance: ECONAZOLE NITRATE
     Indication: Penile erythema
  9. MOXIFLOXACIN [Suspect]
     Active Substance: MOXIFLOXACIN
     Indication: Product used for unknown indication
     Route: 065
     Dates: start: 20230920
  10. AZITHROMYCIN [Concomitant]
     Active Substance: AZITHROMYCIN
     Indication: Paraesthesia
     Dosage: 250 MG, QD
     Route: 048
     Dates: start: 20230723
  11. AZITHROMYCIN [Concomitant]
     Active Substance: AZITHROMYCIN
     Indication: Peritonitis
     Dosage: 250 MG, QD
     Route: 048
     Dates: start: 20230723
  12. CEFTRIAXONE [Concomitant]
     Active Substance: CEFTRIAXONE
     Indication: Paraesthesia
     Route: 042
     Dates: start: 20230723
  13. CICAPLAST [Concomitant]
     Indication: Product used for unknown indication
     Dates: start: 20231102
  14. Dermoval [Concomitant]
     Indication: Product used for unknown indication
     Dates: start: 20231102
  15. EMTRICITABINE [Concomitant]
     Active Substance: EMTRICITABINE
     Indication: Product used for unknown indication
     Dosage: UNK UNK, QD
     Route: 048
  16. TENOFOVIR DISOPROXIL [Concomitant]
     Active Substance: TENOFOVIR DISOPROXIL
     Indication: Product used for unknown indication
  17. CHOLECALCIFEROL [Concomitant]
     Active Substance: CHOLECALCIFEROL
     Indication: Product used for unknown indication
  18. DESLORATADINE [Concomitant]
     Active Substance: DESLORATADINE
  19. MUPIROCIN [Concomitant]
     Active Substance: MUPIROCIN
     Indication: Product used for unknown indication

REACTIONS (3)
  - Balanoposthitis [Not Recovered/Not Resolved]
  - Fixed eruption [Not Recovered/Not Resolved]
  - Drug ineffective [Unknown]

NARRATIVE: CASE EVENT DATE: 20230101
